FAERS Safety Report 10831759 (Version 1)
Quarter: 2015Q1

REPORT INFORMATION
  Report Type: Report from Study
  Country: US (occurrence: US)
  Receive Date: 20150219
  Receipt Date: 20150219
  Transmission Date: 20150721
  Serious: No
  Sender: FDA-Public Use
  Company Number: US-ABBVIE-14P-163-1193776-00

PATIENT
  Age: 58 Year
  Sex: Female

DRUGS (6)
  1. BLOOD PRESSURE MEDS [Concomitant]
     Indication: HYPERTENSION
  2. THYROID MEDS [Concomitant]
     Indication: THYROID DISORDER
  3. BIPOLAR MEDS [Concomitant]
     Indication: BIPOLAR DISORDER
  4. HUMIRA [Suspect]
     Active Substance: ADALIMUMAB
     Indication: RHEUMATOID ARTHRITIS
     Dates: start: 20131219
  5. PAIN MANAGEMENT [Concomitant]
     Indication: ARTHRALGIA
  6. RESTLESS LEG MEDS [Concomitant]
     Indication: RESTLESS LEGS SYNDROME

REACTIONS (2)
  - Arthralgia [Recovered/Resolved]
  - Fatigue [Recovered/Resolved]

NARRATIVE: CASE EVENT DATE: 20131219
